FAERS Safety Report 9862239 (Version 7)
Quarter: 2014Q2

REPORT INFORMATION
  Report Type: Spontaneous
  Country: US (occurrence: US)
  Receive Date: 20140203
  Receipt Date: 20140626
  Transmission Date: 20141212
  Serious: Yes (Hospitalization, Other)
  Sender: FDA-Public Use
  Company Number: US-ASTELLAS-2013US011751

PATIENT
  Age: 28 Year
  Sex: Female

DRUGS (3)
  1. PROGRAF [Suspect]
     Indication: LUNG TRANSPLANT
     Dosage: 6 MG AM / 7 MG PM BID
     Route: 048
     Dates: start: 20130822
  2. PREDNISONE [Suspect]
     Indication: PRODUCT USED FOR UNKNOWN INDICATION
     Dosage: UNK, UNKNOWN FREQ.
     Route: 065
  3. CORTICOSTEROIDS [Suspect]
     Indication: PRODUCT USED FOR UNKNOWN INDICATION
     Dosage: UNK, UNKNOWN FREQ.
     Route: 065

REACTIONS (6)
  - Diabetic ketoacidosis [Unknown]
  - Pneumonia [Recovered/Resolved]
  - Nasopharyngitis [Unknown]
  - Fistula discharge [Not Recovered/Not Resolved]
  - Abdominal pain [Not Recovered/Not Resolved]
  - Off label use [Unknown]
